FAERS Safety Report 24577019 (Version 1)
Quarter: 2024Q4

REPORT INFORMATION
  Report Type: Spontaneous
  Country: US (occurrence: US)
  Receive Date: 20241104
  Receipt Date: 20241104
  Transmission Date: 20250115
  Serious: Yes (Disabling, Other)
  Sender: BAUSCH AND LOMB
  Company Number: US-BAUSCH-BL-2024-016127

PATIENT
  Age: 62 Year
  Sex: Male

DRUGS (2)
  1. XIFAXAN [Suspect]
     Active Substance: RIFAXIMIN
     Indication: Hepatic failure
     Dosage: IN THE MORNING AND EVENING
     Route: 065
  2. LACTULOSE [Concomitant]
     Active Substance: LACTULOSE
     Indication: Product used for unknown indication

REACTIONS (8)
  - Disability [Unknown]
  - Therapy interrupted [Unknown]
  - Amnesia [Unknown]
  - Abnormal behaviour [Unknown]
  - Tremor [Unknown]
  - Dissociation [Unknown]
  - Unevaluable event [Unknown]
  - Insurance issue [Unknown]

NARRATIVE: CASE EVENT DATE: 20240101
